FAERS Safety Report 9812223 (Version 3)
Quarter: 2014Q1

REPORT INFORMATION
  Report Type: Spontaneous
  Country: US (occurrence: US)
  Receive Date: 20140112
  Receipt Date: 20140321
  Transmission Date: 20141002
  Serious: Yes (Other)
  Sender: FDA-Public Use
  Company Number: US-009507513-1401USA003646

PATIENT
  Age: 58 Year
  Sex: Male
  Weight: 86.17 kg

DRUGS (4)
  1. JANUVIA [Suspect]
     Indication: TYPE 2 DIABETES MELLITUS
     Dosage: 100 MG/DAY
     Route: 048
     Dates: start: 201309, end: 2013
  2. METFORMIN [Concomitant]
     Indication: DIABETES MELLITUS
     Dosage: UNK, QD
     Route: 048
     Dates: end: 20131111
  3. OMEPRAZOLE [Concomitant]
     Dosage: 40 MG, QD
     Route: 048
  4. ULORIC [Concomitant]
     Dosage: TOTAL DAILY DOSE 80 MG (START DATE: YEARS AGO)
     Route: 048

REACTIONS (1)
  - Pancreatitis [Recovered/Resolved]
